FAERS Safety Report 6346687-8 (Version None)
Quarter: 2009Q3

REPORT INFORMATION
  Report Type: 
  Country: None (occurrence: None)
  Receive Date: 20090904
  Receipt Date: 20090828
  Transmission Date: 20100115
  Serious: Yes (Hospitalization)
  Sender: FDA-Public Use
  Company Number: TPG2009A00856

PATIENT
  Age: 83 Year
  Sex: Female

DRUGS (8)
  1. ACTOS [Suspect]
     Indication: TYPE 2 DIABETES MELLITUS
     Dosage: 45 MG (45 MG, 1 IN 1 D), PER ORAL
     Route: 048
     Dates: end: 20090723
  2. ESCITALOPRAM [Suspect]
     Indication: DEPRESSION
     Dosage: 15 MG (15 MG, 1 IN 1 D), PER ORAL
     Route: 048
     Dates: start: 20090605, end: 20090727
  3. NEXIUM [Suspect]
     Indication: PROPHYLAXIS
     Dosage: 40 MG (40 MG, 1 IN 1 D), PER ORAL
     Route: 048
     Dates: start: 20090723, end: 20090727
  4. SIMCORA (SIMVASTATIN) [Concomitant]
  5. TORSEMIDE [Concomitant]
  6. LISINOPRIL [Concomitant]
  7. ASPIRIN [Concomitant]
  8. FOSAMAX [Concomitant]

REACTIONS (7)
  - BRADYCARDIA [None]
  - CARDIAC FAILURE [None]
  - DYSPNOEA [None]
  - ELECTROCARDIOGRAM QT INTERVAL ABNORMAL [None]
  - PULMONARY EMBOLISM [None]
  - PULMONARY HYPERTENSION [None]
  - TORSADE DE POINTES [None]
